FAERS Safety Report 16613448 (Version 10)
Quarter: 2024Q1

REPORT INFORMATION
  Report Type: Spontaneous
  Country: FR (occurrence: FR)
  Receive Date: 20190723
  Receipt Date: 20240314
  Transmission Date: 20240410
  Serious: Yes (Hospitalization)
  Sender: FDA-Public Use
  Company Number: FR-CELLTRION INC.-2019FR022891

PATIENT

DRUGS (17)
  1. TRUXIMA [Suspect]
     Active Substance: RITUXIMAB-ABBS
     Indication: Nodal marginal zone B-cell lymphoma stage IV
     Dosage: 700 MG
     Route: 042
     Dates: start: 20190122, end: 20190213
  2. AMOXICILLIN SODIUM [Suspect]
     Active Substance: AMOXICILLIN SODIUM
     Indication: Pyrexia
     Dosage: UNK, INCONNUE
     Route: 048
     Dates: start: 20190203, end: 20190210
  3. AMOXICILLIN SODIUM [Suspect]
     Active Substance: AMOXICILLIN SODIUM
     Dosage: UNK
     Route: 048
     Dates: start: 20190203, end: 20190210
  4. BACTRIM [Suspect]
     Active Substance: SULFAMETHOXAZOLE\TRIMETHOPRIM
     Indication: Prophylaxis
     Dosage: 3 DF, Z, WEEKLY
     Route: 048
     Dates: start: 20190123, end: 20190304
  5. ALLOPURINOL [Concomitant]
     Active Substance: ALLOPURINOL
     Indication: Prophylaxis
     Dosage: 300 MG, QD
     Route: 048
     Dates: start: 20190123, end: 20190203
  6. CLARITHROMYCIN [Concomitant]
     Active Substance: CLARITHROMYCIN
     Indication: Pyrexia
     Dosage: UNK, INCONNUE
     Route: 048
     Dates: start: 20190203
  7. CLARITHROMYCIN [Concomitant]
     Active Substance: CLARITHROMYCIN
     Dosage: UNK
     Route: 048
     Dates: start: 20190203
  8. ELDISINE [Concomitant]
     Active Substance: VINDESINE SULFATE
     Indication: Nodal marginal zone B-cell lymphoma stage IV
     Dosage: UNK, 5 MG AT 5.7 MG CYCLIC
     Route: 041
     Dates: start: 20190122, end: 20190122
  9. CYCLOPHOSPHAMIDE [Concomitant]
     Active Substance: CYCLOPHOSPHAMIDE
     Indication: Nodal marginal zone B-cell lymphoma stage IV
     Dosage: UNK,1000 MG AT 1420 MG CYCLIC VIA INTRAVENOUS DRIP
     Route: 041
     Dates: start: 20190122, end: 20190122
  10. KARDEGIC [Concomitant]
     Active Substance: ASPIRIN DL-LYSINE
     Indication: Product used for unknown indication
     Dosage: 1 DF
     Route: 048
     Dates: start: 20190301
  11. KARDEGIC [Concomitant]
     Active Substance: ASPIRIN DL-LYSINE
     Dosage: 1 DF
     Route: 048
     Dates: start: 20190301
  12. LEUCOVORIN CALCIUM [Concomitant]
     Active Substance: LEUCOVORIN CALCIUM
     Indication: Prophylaxis
     Dosage: 1 DF, PER SECOND
     Route: 048
  13. ROXITHROMYCIN [Concomitant]
     Active Substance: ROXITHROMYCIN
     Indication: Febrile neutropenia
     Dosage: UNK, INCONNUE
     Route: 048
     Dates: start: 20190213, end: 20190219
  14. ROXITHROMYCIN [Concomitant]
     Active Substance: ROXITHROMYCIN
     Dosage: UNK
     Route: 048
     Dates: start: 20190213, end: 20190219
  15. PREDNISOLONE SODIUM METAZOATE [Concomitant]
     Active Substance: PREDNISOLONE SODIUM METAZOATE
     Indication: Nodal marginal zone B-cell lymphoma stage IV
     Dosage: 45MGX2 / 450 MG
     Route: 048
     Dates: start: 20190122, end: 20190122
  16. TELMISARTAN [Concomitant]
     Active Substance: TELMISARTAN
     Indication: Product used for unknown indication
     Dosage: 80 MG, QD
     Route: 048
     Dates: start: 20190301
  17. CHOLECALCIFEROL [Concomitant]
     Active Substance: CHOLECALCIFEROL
     Indication: Vitamin supplementation
     Dosage: 1 DF, Z, EVERY 3 MONTHS
     Route: 048
     Dates: start: 20190301

REACTIONS (7)
  - Eosinophilia [Recovered/Resolved]
  - Rash maculo-papular [Recovered/Resolved]
  - Oedema peripheral [Recovered/Resolved]
  - Underdose [Unknown]
  - Intentional product use issue [Unknown]
  - Off label use [Unknown]
  - Intentional product use issue [Unknown]

NARRATIVE: CASE EVENT DATE: 20190217
